FAERS Safety Report 20663709 (Version 2)
Quarter: 2022Q2

REPORT INFORMATION
  Report Type: Spontaneous
  Country: IE (occurrence: IE)
  Receive Date: 20220401
  Receipt Date: 20220412
  Transmission Date: 20220721
  Serious: Yes (Hospitalization, Disabling, Other)
  Sender: FDA-Public Use
  Company Number: None

PATIENT
  Age: 14 Year
  Sex: Female

DRUGS (32)
  1. ARIPIPRAZOLE [Interacting]
     Active Substance: ARIPIPRAZOLE
     Indication: Autism spectrum disorder
     Dosage: ONE TABLET TWICE DAILY AND HALF AT NIGHT, ARIPIPRAZOLE (G), UNIT DOSE: 5 MG, DURATION 110 DAY
     Dates: start: 20191109
  2. ARIPIPRAZOLE [Interacting]
     Active Substance: ARIPIPRAZOLE
     Dosage: UNIT DOSE: 7.5 MG, DURATION 110 DAYS
     Route: 048
     Dates: start: 20190717
  3. ARIPIPRAZOLE [Interacting]
     Active Substance: ARIPIPRAZOLE
     Dosage: DURATION 110 DAYS
     Dates: start: 20200131, end: 20200519
  4. DIAZEPAM [Suspect]
     Active Substance: DIAZEPAM
     Indication: Depressed mood
     Dosage: 2MG UP TO 3 TIMES DAILY, PRN- NEARLY EVERY SCHOOL DAY, DURATION 58 DAYS
     Route: 048
     Dates: start: 20191119, end: 20200115
  5. DIAZEPAM [Suspect]
     Active Substance: DIAZEPAM
     Indication: Anxiety
  6. FLUOXETINE [Interacting]
     Active Substance: FLUOXETINE HYDROCHLORIDE
     Indication: Depressed mood
     Dosage: PROZAC ORAL SOLUTION 20MG/ 5ML: 2.5ML (10MG) IN THE MORNING, UNIT DOSE: 10 MG, DURATION 301 DAYS
     Route: 048
     Dates: start: 20191109
  7. FLUOXETINE [Interacting]
     Active Substance: FLUOXETINE HYDROCHLORIDE
     Dosage: PROZAC CAPSULES 20MG, UNIT DOSE: 20 MG, DURATION 301 DAYS
     Dates: start: 20191119
  8. FLUOXETINE [Interacting]
     Active Substance: FLUOXETINE HYDROCHLORIDE
     Dosage: PROZAMEL 20MG,TWO CAPSULES IN THE MORNING, UNIT DOSE: 20 MG, FREQUENCY TIME 24 HRS, DURATION 301 DAY
     Dates: start: 20200905
  9. FLUOXETINE [Interacting]
     Active Substance: FLUOXETINE HYDROCHLORIDE
     Dosage: FLUZAC 20 MG, TWO CAPSULES IN THE MORNING, UNIT DOSE: 20 MG, DURATION 301 DAYS
     Dates: start: 20200519
  10. FLUOXETINE [Interacting]
     Active Substance: FLUOXETINE HYDROCHLORIDE
     Dosage: 20 MILLIGRAM DAILY; PROZAMEL 20MG, DURATION 301 DAYS
     Dates: start: 20201101, end: 20210828
  11. FLUOXETINE [Interacting]
     Active Substance: FLUOXETINE HYDROCHLORIDE
     Dosage: PROZAC CAPSULES 20MG, TWO IN THE MORNING,  DURATION 301 DAYS, UNIT DOSE: 20 MG
     Dates: start: 20200227
  12. FLUOXETINE [Interacting]
     Active Substance: FLUOXETINE HYDROCHLORIDE
     Dosage: PROZAC ORAL SOLUTION 7.5ML (30MG) IN THE MORNING, DURATION 301 DAYS
     Dates: start: 20191122
  13. DROSPIRENONE [Concomitant]
     Active Substance: DROSPIRENONE
     Dosage: FOR ACTIVE INGREDIENT ETHINYLESTRADIOL THE STRENGTH IS 20 MICROGRAM .?FOR ACTIVE INGREDIENT DROSPIRE
     Dates: start: 20201030
  14. MELATONIN (G) [Concomitant]
     Dosage: ONE OR TWO TO BE TAKEN AT NIGHT
     Dates: start: 20200324
  15. MELATONIN (G) [Concomitant]
     Dosage: 4 MILLIGRAM DAILY; CIRCADIN/MELATONIN ULM: 2 (2MG) CAPSULES AT NIGHT
     Route: 048
     Dates: start: 20191109
  16. MEFENAMIC ACID (G) [Concomitant]
     Dosage: HALF OR ONE TABLET THREE TIMES DAILY
     Route: 048
     Dates: start: 20200616
  17. RIVOTRIL [Concomitant]
     Active Substance: CLONAZEPAM
     Dosage: UNIT DOSE: 0.5 MG, STRENGTH: 0.5 MG, FREQUENCY TIME 12 HR, DURATION : 14 DAYS
     Dates: start: 20200622
  18. SERTRALINE BLUEFISH [Concomitant]
     Dosage: INCREASING DOSE, UNIT DOSE: 50 MG. STRENGTH: 50 MG, DURATION 11 DAYS, FREQUENCY TIME 24 HR
     Route: 048
     Dates: start: 20191109, end: 20191119
  19. LISDEXAMFETAMINE DIMESYLATE [Concomitant]
     Active Substance: LISDEXAMFETAMINE DIMESYLATE
     Dosage: IN THE MORNING, STRENGTH: 20 MG
     Dates: start: 20200623
  20. LISDEXAMFETAMINE DIMESYLATE [Concomitant]
     Active Substance: LISDEXAMFETAMINE DIMESYLATE
     Dosage: STRENGTH: 20 MG
     Dates: start: 20200722
  21. LISDEXAMFETAMINE DIMESYLATE [Concomitant]
     Active Substance: LISDEXAMFETAMINE DIMESYLATE
     Dosage: STRENGTH: 20 MG
     Dates: start: 20201109
  22. LISDEXAMFETAMINE DIMESYLATE [Concomitant]
     Active Substance: LISDEXAMFETAMINE DIMESYLATE
     Dosage: IN THE MORNING, STRENGTH: 20 MG
     Dates: start: 20200710
  23. LISDEXAMFETAMINE DIMESYLATE [Concomitant]
     Active Substance: LISDEXAMFETAMINE DIMESYLATE
     Dosage: STRENGTH: 20 MG
     Dates: start: 20210401
  24. ALTAVITA D3 [Concomitant]
     Dosage: EVERY TWO WEEKS THEN ONCE PER MONTH, ALTAVITAD3 ORAL SOLUTION 25,000 INTERNATIONAL
     Dates: start: 20191204
  25. CLOTRIMAZOLE\HYDROCORTISONE [Concomitant]
     Active Substance: CLOTRIMAZOLE\HYDROCORTISONE
     Dosage: THREE TIME DAILY, DURATION 5 DAYS; CANESTEN HC 1% W/W + 1% W/W CREAMCLOTRIMAZOLE/HYDROCORTISONE
     Dates: start: 20201126
  26. CLOTRIMAZOLE\HYDROCORTISONE [Concomitant]
     Active Substance: CLOTRIMAZOLE\HYDROCORTISONE
     Dosage: DURATION : 5 DAYS; CANESTEN HC 1% W/W + 1% W/W CREAMCLOTRIMAZOLE/HYDROCORTISONE
     Dates: start: 20201030
  27. OLANZAPINE [Concomitant]
     Active Substance: OLANZAPINE
     Dosage: 7.5 MILLIGRAM DAILY; 2.5MG IN THE MORNING, 5 MG AT 5PM,
     Route: 048
     Dates: start: 20200630
  28. CONCERTA [Concomitant]
     Active Substance: METHYLPHENIDATE HYDROCHLORIDE
     Dosage: 36 MILLIGRAM DAILY; IN THE MORNING, STRENGTH: 18 MG
     Dates: start: 20200602
  29. CONCERTA [Concomitant]
     Active Substance: METHYLPHENIDATE HYDROCHLORIDE
     Dosage: 36 MILLIGRAM DAILY; IN THE MORNING, STRENGTH: 18 MG
     Dates: start: 20200228
  30. CONCERTA [Concomitant]
     Active Substance: METHYLPHENIDATE HYDROCHLORIDE
     Dosage: 18 MILLIGRAM DAILY; IN THE MORNING, STRENGTH: 18 MG
     Dates: start: 20200124
  31. CONCERTA [Concomitant]
     Active Substance: METHYLPHENIDATE HYDROCHLORIDE
     Dosage: 27 MILLIGRAM DAILY; IN THE MORNING, UNIT DOSE: 27 MG
     Dates: start: 20200316
  32. RITALIN [Concomitant]
     Active Substance: METHYLPHENIDATE HYDROCHLORIDE
     Dosage: 10 MILLIGRAM DAILY; IN THE EVENING, STRENGTH 10 MG
     Dates: start: 20201009

REACTIONS (13)
  - Body dysmorphic disorder [Recovered/Resolved]
  - Intentional self-injury [Recovered/Resolved]
  - Weight increased [Recovered/Resolved]
  - Personality change [Recovered/Resolved]
  - Drug interaction [Unknown]
  - Hypersexuality [Recovered/Resolved]
  - Hyperphagia [Recovered/Resolved]
  - Impulse-control disorder [Recovered/Resolved]
  - Theft [Recovered/Resolved]
  - Social anxiety disorder [Recovering/Resolving]
  - Oropharyngeal pain [Recovered/Resolved]
  - Agitation [Recovered/Resolved]
  - Suicidal ideation [Recovered/Resolved]

NARRATIVE: CASE EVENT DATE: 20190901
